FAERS Safety Report 25290046 (Version 1)
Quarter: 2025Q2

REPORT INFORMATION
  Report Type: Report from Study
  Country: CA (occurrence: CA)
  Receive Date: 20250509
  Receipt Date: 20250509
  Transmission Date: 20250717
  Serious: Yes (Hospitalization, Other)
  Sender: HLS THERAPEUTICS
  Company Number: CA-HLS-202500884

PATIENT
  Age: 17 Year
  Sex: Male

DRUGS (1)
  1. CLOZARIL [Suspect]
     Active Substance: CLOZAPINE
     Indication: Product used for unknown indication
     Route: 048
     Dates: start: 20250326, end: 20250422

REACTIONS (9)
  - Acute kidney injury [Unknown]
  - Neutrophil count increased [Unknown]
  - Confusional state [Unknown]
  - Pyrexia [Unknown]
  - Full blood count abnormal [Unknown]
  - Off label use [Unknown]
  - Pericardial effusion [Unknown]
  - Blast cells present [Unknown]
  - White blood cell count increased [Unknown]

NARRATIVE: CASE EVENT DATE: 20250326
